FAERS Safety Report 22344314 (Version 2)
Quarter: 2023Q2

REPORT INFORMATION
  Report Type: Spontaneous
  Country: JP (occurrence: None)
  Receive Date: 20230519
  Receipt Date: 20230630
  Transmission Date: 20230722
  Serious: Yes (Hospitalization, Other)
  Sender: FDA-Public Use
  Company Number: 2023A112070

PATIENT
  Age: 56 Year
  Sex: Female
  Weight: 64 kg

DRUGS (9)
  1. FASLODEX [Suspect]
     Active Substance: FULVESTRANT
     Indication: Breast cancer female
     Route: 030
  2. PALBOCICLIB [Suspect]
     Active Substance: PALBOCICLIB
     Indication: Breast cancer female
     Dosage: DOSE UNKNOWN
     Route: 048
     Dates: start: 20220404, end: 20220612
  3. FASLODEX [Suspect]
     Active Substance: FULVESTRANT
     Indication: Breast cancer female
     Route: 030
  4. ABEMACICLIB [Suspect]
     Active Substance: ABEMACICLIB
     Indication: Breast cancer female
     Dosage: DOSE UNKNOWN
     Route: 048
     Dates: start: 2023
  5. VERZENIO [Suspect]
     Active Substance: ABEMACICLIB
     Indication: Breast cancer female
     Route: 048
     Dates: start: 20220613, end: 20230507
  6. DENOSUMAB [Concomitant]
     Active Substance: DENOSUMAB
     Indication: Metastases to bone
     Route: 058
     Dates: start: 20180318
  7. CALCIUM CARBONATE\CHOLECALCIFEROL\MAGNESIUM CARBONATE [Concomitant]
     Active Substance: CALCIUM CARBONATE\CHOLECALCIFEROL\MAGNESIUM CARBONATE
     Indication: Metastases to bone
     Route: 048
     Dates: start: 20190721
  8. LOXOPROFEN [Concomitant]
     Active Substance: LOXOPROFEN
     Indication: Metastases to bone
     Route: 048
     Dates: start: 20190419
  9. REBAMIPIDE [Concomitant]
     Active Substance: REBAMIPIDE
     Indication: Metastases to bone
     Route: 048
     Dates: start: 20190513

REACTIONS (1)
  - Cerebral infarction [Recovering/Resolving]

NARRATIVE: CASE EVENT DATE: 20221124
